FAERS Safety Report 5274619-2 (Version None)
Quarter: 2007Q1

REPORT INFORMATION
  Report Type: 
  Country: None (occurrence: None)
  Receive Date: 20070320
  Receipt Date: 20070308
  Transmission Date: 20070707
  Serious: Yes (Other)
  Sender: FDA-Public Use
  Company Number: PAR_1415_2007

PATIENT
  Age: 10 Year
  Sex: Female
  Weight: 58.9676 kg

DRUGS (1)
  1. POLYETHYLENE GLYCOL 3350, NF POWDER FOR ORAL SOLUTION [Suspect]
     Indication: ABDOMINAL PAIN UPPER
     Dosage: 17 G ONCE PO
     Route: 048
     Dates: start: 20070308, end: 20070308

REACTIONS (7)
  - BLOOD PRESSURE INCREASED [None]
  - DIARRHOEA [None]
  - DYSPNOEA [None]
  - HEART RATE INCREASED [None]
  - HYPERSENSITIVITY [None]
  - PRURITUS [None]
  - URTICARIA [None]
